FAERS Safety Report 23949559 (Version 1)
Quarter: 2024Q2

REPORT INFORMATION
  Report Type: Spontaneous
  Country: US (occurrence: US)
  Receive Date: 20240607
  Receipt Date: 20240607
  Transmission Date: 20240716
  Serious: No
  Sender: FDA-Public Use
  Company Number: US-TAKEDA-2024TUS056166

PATIENT
  Sex: Female
  Weight: 73 kg

DRUGS (2)
  1. COLCHICINE [Suspect]
     Active Substance: COLCHICINE
     Indication: Arthritis
     Dosage: 0.6 MILLIGRAM, BID
     Route: 065
     Dates: start: 202309
  2. COLCHICINE [Suspect]
     Active Substance: COLCHICINE
     Indication: Gout

REACTIONS (1)
  - Renal disorder [Unknown]
